FAERS Safety Report 6900838-2 (Version None)
Quarter: 2010Q3

REPORT INFORMATION
  Report Type: 
  Country: None (occurrence: None)
  Receive Date: 20100803
  Receipt Date: 20100727
  Transmission Date: 20110219
  Serious: Yes (Death, Other)
  Sender: FDA-Public Use
  Company Number: US-CELGENEUS-163-21880-09042348

PATIENT

DRUGS (3)
  1. REVLIMID [Suspect]
     Indication: MYELOFIBROSIS
     Route: 048
  2. PREDNISONE [Suspect]
     Indication: MYELOFIBROSIS
     Dosage: TAPER 30MG QD/15MGQD/15MG QOD
     Route: 065
  3. ASPIRIN [Concomitant]
     Indication: PROPHYLAXIS
     Route: 065

REACTIONS (14)
  - ANAEMIA [None]
  - BONE MARROW FAILURE [None]
  - CARDIAC DISORDER [None]
  - DEATH [None]
  - DIARRHOEA [None]
  - DISEASE PROGRESSION [None]
  - ELECTROLYTE IMBALANCE [None]
  - HYPERGLYCAEMIA [None]
  - HYPOXIA [None]
  - LIVER FUNCTION TEST ABNORMAL [None]
  - MYELOFIBROSIS [None]
  - NEUTROPENIA [None]
  - THROMBOCYTOPENIA [None]
  - THROMBOSIS [None]
